FAERS Safety Report 10308899 (Version 2)
Quarter: 2014Q3

REPORT INFORMATION
  Report Type: Report from Study
  Country: US (occurrence: US)
  Receive Date: 20140716
  Receipt Date: 20140809
  Transmission Date: 20150326
  Serious: Yes (Other)
  Sender: FDA-Public Use
  Company Number: PHEH2014US014120

PATIENT
  Sex: Female

DRUGS (3)
  1. EXTAVIA [Suspect]
     Active Substance: INTERFERON BETA-1B
     Indication: MULTIPLE SCLEROSIS
     Dosage: 0.25 MG (1 ML), QOD
     Route: 058
     Dates: start: 20140327
  2. MOTRIN [Concomitant]
     Active Substance: IBUPROFEN
     Dosage: UNK UKN, UNK
  3. TYLENOL [Concomitant]
     Active Substance: ACETAMINOPHEN
     Dosage: UNK UKN, UNK

REACTIONS (10)
  - Liver disorder [Unknown]
  - Nephrolithiasis [Unknown]
  - Hepatic neoplasm [Unknown]
  - Stress [Unknown]
  - Constipation [Unknown]
  - Cystitis [Unknown]
  - Abdominal discomfort [Unknown]
  - Abdominal pain [Unknown]
  - Hernia [Unknown]
  - Hepatic cyst [Unknown]
